FAERS Safety Report 7951486-7 (Version None)
Quarter: 2011Q4

REPORT INFORMATION
  Report Type: 
  Country: None (occurrence: None)
  Receive Date: 20111201
  Receipt Date: 20111129
  Transmission Date: 20120403
  Serious: No
  Sender: FDA-Public Use
  Company Number: US-TEVA-308057USA

PATIENT
  Sex: Female
  Weight: 66.284 kg

DRUGS (6)
  1. CITALOPRAM [Concomitant]
  2. ALPRAZOLAM [Concomitant]
  3. COPAXONE [Suspect]
     Indication: MULTIPLE SCLEROSIS
     Dosage: 20 MILLIGRAM;
     Route: 058
     Dates: start: 20110701
  4. SOLIFENACIN SUCCINATE [Concomitant]
  5. YAZ [Concomitant]
  6. OBETROL [Concomitant]

REACTIONS (4)
  - RASH [None]
  - HYPERSENSITIVITY [None]
  - ERYTHEMA [None]
  - SWELLING [None]
